FAERS Safety Report 5476599-3 (Version None)
Quarter: 2007Q4

REPORT INFORMATION
  Report Type: 
  Country: None (occurrence: None)
  Receive Date: 20071004
  Receipt Date: 20070926
  Transmission Date: 20080405
  Serious: Yes (Other)
  Sender: FDA-Public Use
  Company Number: PHBS2007SE16196

PATIENT

DRUGS (5)
  1. EXJADE [Suspect]
     Route: 065
  2. EPOGEN [Concomitant]
  3. NEUPOGEN [Concomitant]
  4. VITAMIN B [Concomitant]
  5. CORTISONE ACETATE TAB [Concomitant]

REACTIONS (1)
  - INTRAOCULAR LENS DISLOCATION [None]
